FAERS Safety Report 5840618-2 (Version None)
Quarter: 2008Q3

REPORT INFORMATION
  Report Type: 
  Country: None (occurrence: None)
  Receive Date: 20080811
  Receipt Date: 20080805
  Transmission Date: 20090109
  Serious: Yes (Death, Other)
  Sender: FDA-Public Use
  Company Number: IE-PFIZER INC-2008065879

PATIENT
  Age: 62 Year
  Sex: Male

DRUGS (2)
  1. LIPITOR [Interacting]
  2. FUSIDIC ACID [Suspect]

REACTIONS (3)
  - DEATH [None]
  - DRUG INTERACTION [None]
  - RHABDOMYOLYSIS [None]
